FAERS Safety Report 19898266 (Version 1)
Quarter: 2021Q3

REPORT INFORMATION
  Report Type: Spontaneous
  Country: FR (occurrence: FR)
  Receive Date: 20210930
  Receipt Date: 20210930
  Transmission Date: 20211014
  Serious: Yes (Hospitalization)
  Sender: FDA-Public Use
  Company Number: FR-LUPIN PHARMACEUTICALS INC.-2021-18449

PATIENT
  Age: 13 Year
  Sex: Male

DRUGS (7)
  1. POLYETHYLENE GLYCOL [Suspect]
     Active Substance: POLYETHYLENE GLYCOLS
     Indication: TAENIASIS
     Dosage: UNK
     Route: 065
  2. ALBENDAZOL [Suspect]
     Active Substance: ALBENDAZOLE
     Indication: TAENIASIS
     Dosage: UNK
     Route: 065
  3. AMOXICILLIN. [Concomitant]
     Active Substance: AMOXICILLIN
     Indication: HELICOBACTER GASTRITIS
     Dosage: UNK
     Route: 065
  4. CIPROFLOXACIN. [Concomitant]
     Active Substance: CIPROFLOXACIN
     Indication: HELICOBACTER GASTRITIS
     Dosage: UNK
     Route: 065
  5. IRON [Concomitant]
     Active Substance: IRON
     Indication: IRON DEFICIENCY ANAEMIA
     Dosage: UNK
     Route: 065
  6. NICLOSAMIDE [Suspect]
     Active Substance: NICLOSAMIDE
     Indication: TAENIASIS
     Dosage: UNK
     Route: 065
  7. BILTRICIDE [Suspect]
     Active Substance: PRAZIQUANTEL
     Indication: TAENIASIS
     Dosage: UNK
     Route: 065

REACTIONS (1)
  - Drug ineffective [Unknown]
